FAERS Safety Report 15790393 (Version 4)
Quarter: 2019Q4

REPORT INFORMATION
  Report Type: Spontaneous
  Country: US (occurrence: US)
  Receive Date: 20190104
  Receipt Date: 20191003
  Transmission Date: 20200122
  Serious: Yes (Death, Hospitalization, Other)
  Sender: FDA-Public Use
  Company Number: US-LEXICON PHARMACEUTICALS, INC-18-1606-01529

PATIENT
  Age: 72 Year
  Sex: Male

DRUGS (5)
  1. VITAMIN D3 [Concomitant]
     Active Substance: CHOLECALCIFEROL
  2. TELOTRISTAT ETHYL [Suspect]
     Active Substance: TELOTRISTAT ETHYL
     Indication: PANCREATIC CARCINOMA
     Route: 048
     Dates: start: 20180822
  3. SANDOSTATIN [Concomitant]
     Active Substance: OCTREOTIDE ACETATE
  4. ZOFRAN [Concomitant]
     Active Substance: ONDANSETRON HYDROCHLORIDE
  5. TELOTRISTAT ETHYL [Suspect]
     Active Substance: TELOTRISTAT ETHYL
     Indication: NEUROENDOCRINE TUMOUR

REACTIONS (8)
  - Vomiting [Recovered/Resolved]
  - Death [Fatal]
  - Hospitalisation [Unknown]
  - Diarrhoea [Recovering/Resolving]
  - Hepatomegaly [Unknown]
  - Constipation [Recovered/Resolved]
  - Radiotherapy [Recovered/Resolved with Sequelae]
  - Abdominal pain upper [Recovered/Resolved]

NARRATIVE: CASE EVENT DATE: 20190909
